FAERS Safety Report 6077578-8 (Version None)
Quarter: 2009Q1

REPORT INFORMATION
  Report Type: 
  Country: None (occurrence: None)
  Receive Date: 20090126
  Receipt Date: 20080625
  Transmission Date: 20090719
  Serious: Yes (Other)
  Sender: FDA-Public Use
  Company Number: WAES 0806USA08768

PATIENT
  Age: 44 Year
  Sex: Male
  Weight: 123.832 kg

DRUGS (6)
  1. PRIMAXIN [Suspect]
     Indication: ABSCESS
     Dosage: 4.5 GM/IV
     Route: 042
     Dates: start: 20080520, end: 20080528
  2. DECADRON [Concomitant]
  3. ELAVIL [Concomitant]
  4. LEVEMIR [Concomitant]
  5. NOVOLOG [Concomitant]
  6. VANCOMYCIN HCL [Concomitant]

REACTIONS (1)
  - CONVULSION [None]
